FAERS Safety Report 7925926-3 (Version None)
Quarter: 2011Q4

REPORT INFORMATION
  Report Type: 
  Country: None (occurrence: None)
  Receive Date: 20111118
  Receipt Date: 20110414
  Transmission Date: 20120403
  Serious: No
  Sender: FDA-Public Use
  Company Number: US-AMGEN-USASP2011010226

PATIENT
  Age: 16 Year
  Sex: Female

DRUGS (1)
  1. ENBREL [Suspect]
     Indication: PSORIASIS
     Dosage: 25 MG, 2 TIMES/WK
     Dates: start: 20101229

REACTIONS (5)
  - LYMPHADENOPATHY [None]
  - DRUG INEFFECTIVE [None]
  - VIRAL INFECTION [None]
  - AXILLARY PAIN [None]
  - EAR PAIN [None]
